FAERS Safety Report 9744497 (Version 1)
Quarter: 2013Q4

REPORT INFORMATION
  Report Type: Spontaneous
  Country: US (occurrence: KR)
  Receive Date: 20131210
  Receipt Date: 20131210
  Transmission Date: 20140711
  Serious: Yes (Hospitalization)
  Sender: FDA-Public Use
  Company Number: KR-FRI-1000052117

PATIENT
  Age: 63 Year
  Sex: Male
  Weight: 56 kg

DRUGS (7)
  1. ROFLUMILAST [Suspect]
     Indication: CHRONIC OBSTRUCTIVE PULMONARY DISEASE
     Dosage: 1 DF
     Route: 048
     Dates: start: 20130628
  2. SYMBICORT [Concomitant]
     Dates: start: 20130628, end: 20130915
  3. SPIRIVA [Concomitant]
     Dates: start: 20130916
  4. SERETIDE [Concomitant]
     Dates: start: 20130917
  5. CODENAL [Concomitant]
     Dates: start: 20130628
  6. ERDOS [Concomitant]
     Dates: start: 20130628
  7. ANYDIPINE [Concomitant]
     Dates: start: 20130914

REACTIONS (1)
  - Dyspnoea [Not Recovered/Not Resolved]
